FAERS Safety Report 12607353 (Version 3)
Quarter: 2016Q3

REPORT INFORMATION
  Report Type: Spontaneous
  Country: US (occurrence: US)
  Receive Date: 20160729
  Receipt Date: 20160916
  Transmission Date: 20161109
  Serious: No
  Sender: FDA-Public Use
  Company Number: US-PFIZER INC-2016333997

PATIENT
  Age: 81 Year
  Sex: Female
  Weight: 57 kg

DRUGS (3)
  1. ADVIL PM [Suspect]
     Active Substance: DIPHENHYDRAMINE CITRATE\IBUPROFEN
     Indication: PAIN
  2. ADVIL PM [Suspect]
     Active Substance: DIPHENHYDRAMINE CITRATE\IBUPROFEN
     Indication: INSOMNIA
     Dosage: 200 MG, 1X/DAY, AT BEDTIME
     Route: 048
     Dates: start: 2016, end: 201607
  3. XANAX [Concomitant]
     Active Substance: ALPRAZOLAM
     Indication: STRESS
     Dosage: 25 MG, AS NEEDED
     Dates: start: 1996

REACTIONS (4)
  - Oropharyngeal pain [Recovered/Resolved]
  - Dysphagia [Unknown]
  - Product difficult to swallow [Unknown]
  - Foreign body [Unknown]

NARRATIVE: CASE EVENT DATE: 2016
